FAERS Safety Report 18010980 (Version 2)
Quarter: 2020Q3

REPORT INFORMATION
  Report Type: Spontaneous
  Country: ES (occurrence: ES)
  Receive Date: 20200710
  Receipt Date: 20200715
  Transmission Date: 20201103
  Serious: Yes (Hospitalization)
  Sender: FDA-Public Use
  Company Number: PHHY2019ES086470

PATIENT
  Age: 86 Year
  Sex: Female

DRUGS (1)
  1. OLMESARTAN MEDOXOMIL. [Suspect]
     Active Substance: OLMESARTAN MEDOXOMIL
     Indication: HYPERTENSION
     Dosage: 40 MG, QD
     Route: 048

REACTIONS (6)
  - Colitis [Recovering/Resolving]
  - Diarrhoea [Recovered/Resolved]
  - Metabolic acidosis [Recovering/Resolving]
  - Gastrointestinal disorder [Recovering/Resolving]
  - Prerenal failure [Recovering/Resolving]
  - Enteritis [Recovering/Resolving]
